FAERS Safety Report 6203934-0 (Version None)
Quarter: 2009Q2

REPORT INFORMATION
  Report Type: 
  Country: None (occurrence: None)
  Receive Date: 20090527
  Receipt Date: 20090519
  Transmission Date: 20091009
  Serious: Yes (Death)
  Sender: FDA-Public Use
  Company Number: A0785937A

PATIENT
  Sex: Female
  Weight: 78 kg

DRUGS (3)
  1. SERETIDE [Suspect]
     Indication: ASTHMA
     Dosage: 2PUFF TWICE PER DAY
     Route: 055
     Dates: start: 20070101, end: 20090430
  2. LEVODROPROPIZINE [Concomitant]
     Dates: start: 20080501, end: 20090430
  3. ATROVENT [Concomitant]
     Dosage: 1PUFF TWICE PER DAY
     Dates: start: 20070101, end: 20090430

REACTIONS (3)
  - CARDIAC FAILURE [None]
  - CARDIOVASCULAR DISORDER [None]
  - RESPIRATORY FAILURE [None]
